FAERS Safety Report 6466789-5 (Version None)
Quarter: 2009Q4

REPORT INFORMATION
  Report Type: 
  Country: None (occurrence: None)
  Receive Date: 20091202
  Receipt Date: 20091028
  Transmission Date: 20100525
  Serious: No
  Sender: FDA-Public Use
  Company Number: US-BAYER-200938854NA

PATIENT
  Age: 41 Year
  Sex: Female
  Weight: 77 kg

DRUGS (2)
  1. ULTRAVIST (PHARMACY BULK) [Suspect]
     Indication: COMPUTERISED TOMOGRAM ABDOMEN
     Dosage: TOTAL DAILY DOSE: 146 ML  UNIT DOSE: 150 ML
     Route: 042
     Dates: start: 20091022, end: 20091022
  2. PREDNISONE TAB [Concomitant]
     Indication: ASTHMA

REACTIONS (1)
  - URTICARIA [None]
